FAERS Safety Report 6547704-2 (Version None)
Quarter: 2010Q1

REPORT INFORMATION
  Report Type: 
  Country: None (occurrence: None)
  Receive Date: 20100123
  Receipt Date: 20100111
  Transmission Date: 20100710
  Serious: Yes (Other)
  Sender: FDA-Public Use
  Company Number: FR-JNJFOC-20100106405

PATIENT
  Sex: Female

DRUGS (4)
  1. IXPRIM [Suspect]
     Indication: ANAL FISSURE
     Route: 048
  2. IXPRIM [Suspect]
     Route: 048
  3. VOLTAREN [Suspect]
     Indication: ANAL FISSURE
     Route: 048
  4. OMEPRAZOLE [Concomitant]
     Route: 065

REACTIONS (2)
  - MYALGIA [None]
  - MYOCLONUS [None]
